FAERS Safety Report 9260196 (Version 4)
Quarter: 2014Q1

REPORT INFORMATION
  Report Type: Spontaneous
  Country: US (occurrence: US)
  Receive Date: 20130429
  Receipt Date: 20140219
  Transmission Date: 20141002
  Serious: No
  Sender: FDA-Public Use
  Company Number: US-PFIZER INC-2013132799

PATIENT
  Age: 66 Year
  Sex: Female
  Weight: 59.86 kg

DRUGS (8)
  1. LYRICA [Suspect]
     Indication: ERYTHROMELALGIA
     Dosage: 25 MG, 3X/DAY
     Route: 048
     Dates: start: 201304
  2. LYRICA [Interacting]
     Indication: NEUROPATHY PERIPHERAL
     Dosage: 50 MG, 3X/DAY
  3. LYRICA [Interacting]
     Indication: NEUROPATHY PERIPHERAL
     Dosage: 75 MG, 3X/DAY
  4. LYRICA [Interacting]
     Indication: ERYTHROMELALGIA
     Dosage: 25 MG, 3X/DAY
     Dates: start: 201304
  5. AMITRIPTYLINE [Concomitant]
     Dosage: UNK
  6. KLONOPIN [Concomitant]
     Indication: SLEEP DISORDER
     Dosage: CUTTING 1MG TABLET IN QUARTERS AS NEEDED
  7. ATIVAN [Concomitant]
     Dosage: CUTTING 1MG TABLET IN QUARTERS
  8. ELAVIL [Concomitant]
     Indication: CYSTITIS INTERSTITIAL
     Dosage: 12.5 MG, 1X/DAY

REACTIONS (10)
  - Off label use [Unknown]
  - Nausea [Unknown]
  - Gastrointestinal disorder [Unknown]
  - Abdominal pain upper [Unknown]
  - Dyspepsia [Unknown]
  - Oesophageal pain [Unknown]
  - Drug interaction [Unknown]
  - Myopia [Unknown]
  - Vision blurred [Not Recovered/Not Resolved]
  - Blood potassium increased [Unknown]
